FAERS Safety Report 6603266-2 (Version None)
Quarter: 2010Q1

REPORT INFORMATION
  Report Type: 
  Country: None (occurrence: None)
  Receive Date: 20100226
  Receipt Date: 20100215
  Transmission Date: 20100710
  Serious: Yes (Death)
  Sender: FDA-Public Use
  Company Number: US-JNJFOC-20100208256

PATIENT
  Sex: Male

DRUGS (5)
  1. FENTANYL [Suspect]
     Indication: DRUG USE FOR UNKNOWN INDICATION
     Route: 065
  2. COCAINE [Suspect]
     Indication: DRUG USE FOR UNKNOWN INDICATION
     Route: 065
  3. ETHYL ALCOHOL [Suspect]
     Indication: DRUG USE FOR UNKNOWN INDICATION
     Route: 065
  4. TRAZODONE HCL [Concomitant]
  5. BENZOYLECGONINE [Concomitant]

REACTIONS (3)
  - ALCOHOL POISONING [None]
  - DRUG ABUSE [None]
  - DRUG TOXICITY [None]
